FAERS Safety Report 16017724 (Version 1)
Quarter: 2019Q1

REPORT INFORMATION
  Report Type: Spontaneous
  Country: US (occurrence: US)
  Receive Date: 20190228
  Receipt Date: 20190228
  Transmission Date: 20190418
  Serious: Yes (Death, Life-Threatening, Hospitalization)
  Sender: FDA-Public Use
  Company Number: None

PATIENT
  Age: 67 Year
  Sex: Female
  Weight: 88.65 kg

DRUGS (9)
  1. EFFEXOR [Concomitant]
     Active Substance: VENLAFAXINE HYDROCHLORIDE
  2. ALPRAZOLAM. [Concomitant]
     Active Substance: ALPRAZOLAM
  3. GABAPENTIN. [Concomitant]
     Active Substance: GABAPENTIN
  4. LISINOPRIL. [Suspect]
     Active Substance: LISINOPRIL
     Indication: HYPERTENSION
     Dosage: ?          QUANTITY:1 TABLET(S);?
     Route: 048
     Dates: start: 20190110, end: 20190116
  5. LIPITOR [Concomitant]
     Active Substance: ATORVASTATIN CALCIUM
  6. GEODON [Concomitant]
     Active Substance: ZIPRASIDONE HYDROCHLORIDE\ZIPRASIDONE MESYLATE
  7. ASPIRIN. [Concomitant]
     Active Substance: ASPIRIN
  8. SYNTHROID [Concomitant]
     Active Substance: LEVOTHYROXINE SODIUM
  9. INSULIN [Concomitant]
     Active Substance: INSULIN NOS

REACTIONS (3)
  - Mental impairment [None]
  - Thrombosis [None]
  - Condition aggravated [None]

NARRATIVE: CASE EVENT DATE: 20190110
